FAERS Safety Report 11203598 (Version 1)
Quarter: 2015Q2

REPORT INFORMATION
  Report Type: Spontaneous
  Country: US (occurrence: US)
  Receive Date: 20150619
  Receipt Date: 20150619
  Transmission Date: 20150821
  Serious: Yes (Death, Other)
  Sender: FDA-Public Use
  Company Number: US-COREPHARMA LLC-2015COR00121

PATIENT
  Age: 67 Year
  Sex: Female

DRUGS (9)
  1. FLURAZEPAM [Suspect]
     Active Substance: FLURAZEPAM\FLURAZEPAM HYDROCHLORIDE
  2. TRAMADOL [Suspect]
     Active Substance: TRAMADOL
  3. OXYCODONE [Suspect]
     Active Substance: OXYCODONE
  4. TOPIRAMATE. [Suspect]
     Active Substance: TOPIRAMATE
  5. ACETAMINOPHEN. [Suspect]
     Active Substance: ACETAMINOPHEN
  6. BUSPIRONE [Suspect]
     Active Substance: BUSPIRONE HYDROCHLORIDE
  7. IBUPROFEN. [Suspect]
     Active Substance: IBUPROFEN
  8. DIPHENHYDRAMINE [Suspect]
     Active Substance: DIPHENHYDRAMINE
  9. CAFFEINE. [Suspect]
     Active Substance: CAFFEINE

REACTIONS (4)
  - Cerebral hypoperfusion [Fatal]
  - Loss of consciousness [Not Recovered/Not Resolved]
  - Cerebellar infarction [Fatal]
  - Overdose [Fatal]
